FAERS Safety Report 25959154 (Version 2)
Quarter: 2025Q4

REPORT INFORMATION
  Report Type: Spontaneous
  Country: US (occurrence: US)
  Receive Date: 20251025
  Receipt Date: 20251027
  Transmission Date: 20260118
  Serious: No
  Sender: ABBVIE
  Company Number: US-ABBVIE-6514185

PATIENT
  Age: 64 Year
  Sex: Female
  Weight: 90.718 kg

DRUGS (6)
  1. DALVANCE [Suspect]
     Active Substance: DALBAVANCIN HYDROCHLORIDE
     Indication: Arthritis infective
     Dosage: TIME INTERVAL: AS NECESSARY: FORM STRENGTH : 500 MILLIGRAM INJECTION
     Route: 065
     Dates: start: 20250916, end: 20250916
  2. OXYCODONE [Concomitant]
     Active Substance: OXYCODONE
     Indication: Pain
  3. ACETAMINOPHEN [Concomitant]
     Active Substance: ACETAMINOPHEN
     Indication: Pain
  4. VANCOMYCIN [Suspect]
     Active Substance: VANCOMYCIN
     Indication: Arthritis infective
     Route: 065
     Dates: start: 202509, end: 202509
  5. Cal Mag [Concomitant]
     Indication: Osteoporosis
     Dates: start: 20251019
  6. Cal Mag [Concomitant]
     Indication: Osteoporosis
     Dates: start: 20251019

REACTIONS (4)
  - Peripheral swelling [Not Recovered/Not Resolved]
  - Pain in extremity [Not Recovered/Not Resolved]
  - Blister [Not Recovered/Not Resolved]
  - Off label use [Unknown]

NARRATIVE: CASE EVENT DATE: 20250101
